FAERS Safety Report 9000495 (Version 3)
Quarter: 2013Q1

REPORT INFORMATION
  Report Type: Spontaneous
  Country: US (occurrence: None)
  Receive Date: 20121221
  Receipt Date: 20130124
  Transmission Date: 20140127
  Serious: Yes (Hospitalization, Other)
  Sender: FDA-Public Use
  Company Number: JPI-P-026825

PATIENT
  Age: 54 Year
  Sex: Male
  Weight: 97.52 kg

DRUGS (23)
  1. XYREM [Suspect]
     Indication: NARCOLEPSY
     Route: 048
     Dates: start: 20051021
  2. MELOXICAM [Concomitant]
  3. OMEPRAZOLE [Concomitant]
  4. COLACE [Concomitant]
  5. FOLIC ACID [Concomitant]
  6. DIAZEPAM [Concomitant]
  7. HYDROCODONE W/APAP [Concomitant]
  8. HYDROMORPHONE [Concomitant]
  9. AMLODIPINE [Concomitant]
  10. HYDROCHLOROTHIAZIDE [Concomitant]
  11. NITROGLYCERIN [Concomitant]
  12. POTASSIUM CHLORIDE [Concomitant]
  13. FENOFIBRATE [Concomitant]
  14. EZETIMIBE [Concomitant]
  15. AMPHETAMINE SALTS [Concomitant]
  16. METHYLPHENIDATE HYDROCHLORIDE [Concomitant]
  17. METFORMIN [Concomitant]
  18. CLOPIDOGREL BISULFATE [Concomitant]
  19. POLYETHYLENE GLYCOL 3350 [Concomitant]
  20. TERBINAFINE [Concomitant]
  21. GRAPE SEED EXTRACT [Concomitant]
  22. METOPROLOL SUCCINATE [Concomitant]
  23. LOSARTAN POTASSIUM [Concomitant]

REACTIONS (5)
  - Coronary artery occlusion [None]
  - Influenza [None]
  - Initial insomnia [None]
  - Incision site haemorrhage [None]
  - Incision site infection [None]
